FAERS Safety Report 6142644-5 (Version None)
Quarter: 2009Q2

REPORT INFORMATION
  Report Type: 
  Country: None (occurrence: None)
  Receive Date: 20090403
  Receipt Date: 20071104
  Transmission Date: 20091009
  Serious: Yes (Death, Hospitalization, Other)
  Sender: FDA-Public Use
  Company Number: US-ASTRAZENECA-2006UW12071

PATIENT
  Age: 11589 Day
  Sex: Female
  Weight: 95.3 kg

DRUGS (27)
  1. SEROQUEL [Suspect]
     Indication: SCHIZOPHRENIA
     Route: 048
     Dates: start: 20040101, end: 20060101
  2. SEROQUEL [Suspect]
     Indication: BIPOLAR DISORDER
     Route: 048
     Dates: start: 20040101, end: 20060101
  3. SEROQUEL [Suspect]
     Indication: DEPRESSION
     Route: 048
     Dates: start: 20040101, end: 20060101
  4. SEROQUEL [Suspect]
     Indication: ANXIETY
     Route: 048
     Dates: start: 20040101, end: 20060101
  5. SEROQUEL [Suspect]
     Dosage: 100MG - 400MG
     Route: 048
     Dates: start: 20040101, end: 20060201
  6. SEROQUEL [Suspect]
     Dosage: 100MG - 400MG
     Route: 048
     Dates: start: 20040101, end: 20060201
  7. SEROQUEL [Suspect]
     Dosage: 100MG - 400MG
     Route: 048
     Dates: start: 20040101, end: 20060201
  8. SEROQUEL [Suspect]
     Dosage: 100MG - 400MG
     Route: 048
     Dates: start: 20040101, end: 20060201
  9. HYDROXYZINE [Suspect]
  10. ZYPREXA [Suspect]
  11. ABILIFY [Concomitant]
  12. HALDOL [Concomitant]
  13. RISPERDAL [Concomitant]
  14. DIOVAN [Concomitant]
  15. TOPROL-XL [Concomitant]
  16. TRILEPTAL [Concomitant]
  17. ACTOS [Concomitant]
  18. AMBIEN [Concomitant]
  19. TRICOR [Concomitant]
  20. LAMICTAL [Concomitant]
  21. LANTUS [Concomitant]
  22. XANAX [Concomitant]
  23. ENALAPRIL [Concomitant]
  24. GABAPENTIN [Concomitant]
  25. PROMETHAZINE [Concomitant]
  26. NOVOLOG [Concomitant]
  27. TRAZODONE [Concomitant]

REACTIONS (18)
  - ABDOMINAL PAIN [None]
  - ACCIDENTAL OVERDOSE [None]
  - ARTHRALGIA [None]
  - CEREBROVASCULAR ACCIDENT [None]
  - CHEST PAIN [None]
  - DIABETES MELLITUS [None]
  - DIABETIC COMA [None]
  - DIABETIC KETOACIDOSIS [None]
  - DIZZINESS [None]
  - DRUG TOXICITY [None]
  - EPILEPSY [None]
  - FALL [None]
  - FLANK PAIN [None]
  - GRAND MAL CONVULSION [None]
  - HYPOGLYCAEMIA [None]
  - MIGRAINE [None]
  - NERVOUSNESS [None]
  - OVARIAN CANCER [None]
